FAERS Safety Report 17385296 (Version 1)
Quarter: 2020Q1

REPORT INFORMATION
  Report Type: Spontaneous
  Country: US (occurrence: US)
  Receive Date: 20200206
  Receipt Date: 20200206
  Transmission Date: 20200409
  Serious: No
  Sender: FDA-Public Use
  Company Number: US-ABBVIE-19K-163-2904177-00

PATIENT
  Sex: Female

DRUGS (1)
  1. HUMIRA [Suspect]
     Active Substance: ADALIMUMAB
     Indication: HIDRADENITIS
     Route: 058
     Dates: start: 201903, end: 2019

REACTIONS (5)
  - Urine odour abnormal [Unknown]
  - Dysgeusia [Unknown]
  - Abnormal faeces [Unknown]
  - Abdominal distension [Unknown]
  - Flatulence [Unknown]

NARRATIVE: CASE EVENT DATE: 201903
